FAERS Safety Report 17278296 (Version 1)
Quarter: 2020Q1

REPORT INFORMATION
  Report Type: Spontaneous
  Country: US (occurrence: US)
  Receive Date: 20200116
  Receipt Date: 20200116
  Transmission Date: 20200409
  Serious: No
  Sender: FDA-Public Use
  Company Number: None

PATIENT
  Age: 21 Year
  Sex: Female
  Weight: 64.9 kg

DRUGS (5)
  1. DIPHENHYDRAMINE. [Concomitant]
     Active Substance: DIPHENHYDRAMINE
     Dates: start: 20190624
  2. OCRELIZUMAB. [Suspect]
     Active Substance: OCRELIZUMAB
     Indication: MULTIPLE SCLEROSIS
     Dosage: ?          OTHER FREQUENCY:EVERY 6 MONTHS;?
     Route: 042
     Dates: start: 20190624
  3. ACETAMINOPHEN. [Concomitant]
     Active Substance: ACETAMINOPHEN
     Dates: start: 20190624
  4. FAMOTIDINE. [Concomitant]
     Active Substance: FAMOTIDINE
     Dates: start: 20190624
  5. METHYLPREDNISOLONE. [Concomitant]
     Active Substance: METHYLPREDNISOLONE
     Dates: start: 20190624

REACTIONS (2)
  - Throat irritation [None]
  - Infusion related reaction [None]

NARRATIVE: CASE EVENT DATE: 20200113
